FAERS Safety Report 23255438 (Version 1)
Quarter: 2023Q4

REPORT INFORMATION
  Report Type: Spontaneous
  Country: US (occurrence: US)
  Receive Date: 20231203
  Receipt Date: 20231203
  Transmission Date: 20240110
  Serious: No
  Sender: FDA-Public Use
  Company Number: US-AMGEN-USASP2023213019

PATIENT
  Age: 57 Year
  Sex: Male

DRUGS (2)
  1. REPATHA [Suspect]
     Active Substance: EVOLOCUMAB
     Indication: Dyslipidaemia
     Dosage: 420 MILLIGRAM, Q4WK
     Route: 065
     Dates: start: 20230706
  2. REPATHA [Suspect]
     Active Substance: EVOLOCUMAB
     Indication: Coronary artery disease

REACTIONS (2)
  - Feeling abnormal [Unknown]
  - Drug dose omission by device [Unknown]

NARRATIVE: CASE EVENT DATE: 20230101
